FAERS Safety Report 4707147-0 (Version None)
Quarter: 2005Q3

REPORT INFORMATION
  Report Type: 
  Country: None (occurrence: None)
  Receive Date: 20050706
  Receipt Date: 20050628
  Transmission Date: 20060218
  Serious: Yes (Other)
  Sender: FDA-Public Use
  Company Number: BR-ROCHE-409253

PATIENT
  Age: 28 Year
  Sex: Female
  Weight: 60 kg

DRUGS (3)
  1. ROACUTAN [Suspect]
     Indication: ACNE
     Route: 048
     Dates: start: 20050315, end: 20050515
  2. ROACUTAN [Suspect]
     Route: 048
     Dates: start: 20050515
  3. ANALGESIC [Concomitant]
     Indication: HEADACHE
     Dosage: SOMETIMES
     Route: 048

REACTIONS (4)
  - DEPRESSIVE SYMPTOM [None]
  - EMOTIONAL DISORDER [None]
  - INAPPROPRIATE AFFECT [None]
  - SOCIAL AVOIDANT BEHAVIOUR [None]
